FAERS Safety Report 8676155 (Version 7)
Quarter: 2013Q1

REPORT INFORMATION
  Report Type: Spontaneous
  Country: US (occurrence: US)
  Receive Date: 20120720
  Receipt Date: 20130304
  Transmission Date: 20140127
  Serious: Yes (Hospitalization, Disabling, Other)
  Sender: FDA-Public Use
  Company Number: US-009507513-1207USA003692

PATIENT
  Sex: Female

DRUGS (9)
  1. FOSAMAX PLUS D [Suspect]
     Indication: OSTEOPOROSIS
     Dosage: 70MG/2800IU
     Route: 048
     Dates: start: 20090518, end: 20110511
  2. FOSAMAX PLUS D [Suspect]
     Dosage: 70MG/2800IU
     Route: 048
     Dates: start: 20060105, end: 20081102
  3. FOSAMAX [Suspect]
     Indication: OSTEOPOROSIS
     Dosage: 70 MG, UNK
     Route: 048
     Dates: start: 200601, end: 201102
  4. FOSAMAX [Suspect]
     Indication: OSTEOPENIA
  5. CALCIUM (UNSPECIFIED) [Concomitant]
  6. ASCORBIC ACID [Concomitant]
  7. VITAMIN A [Concomitant]
  8. VITAMIN D (UNSPECIFIED) [Concomitant]
  9. ALENDRONATE SODIUM [Suspect]
     Indication: OSTEOPOROSIS
     Dosage: 70 MG, UNK
     Route: 048
     Dates: start: 20081128, end: 20090419

REACTIONS (14)
  - Open reduction of fracture [Unknown]
  - Femur fracture [Unknown]
  - Femur fracture [Unknown]
  - Fall [Unknown]
  - Femur fracture [Unknown]
  - Multiple fractures [Unknown]
  - Hypertension [Unknown]
  - Type 2 diabetes mellitus [Unknown]
  - Venous insufficiency [Unknown]
  - Osteoporosis [Unknown]
  - Bone density decreased [Unknown]
  - Hospitalisation [Unknown]
  - Thyroid disorder [Unknown]
  - Hypercholesterolaemia [Unknown]
